APPROVED DRUG PRODUCT: MOXIFLOXACIN HYDROCHLORIDE
Active Ingredient: MOXIFLOXACIN HYDROCHLORIDE
Strength: EQ 400MG BASE/250ML (EQ 1.6MG BASE/ML)
Dosage Form/Route: SOLUTION;INTRAVENOUS
Application: N205572 | Product #001
Applicant: FRESENIUS KABI USA LLC
Approved: Apr 3, 2015 | RLD: Yes | RS: Yes | Type: RX